FAERS Safety Report 24358225 (Version 1)
Quarter: 2024Q3

REPORT INFORMATION
  Report Type: Spontaneous
  Country: FR (occurrence: FR)
  Receive Date: 20240924
  Receipt Date: 20240924
  Transmission Date: 20241017
  Serious: Yes (Hospitalization, Other)
  Sender: ELI LILLY AND CO
  Company Number: None

PATIENT
  Age: 52 Year
  Sex: Male
  Weight: 72 kg

DRUGS (5)
  1. ALIMTA [Suspect]
     Active Substance: PEMETREXED DISODIUM
     Indication: Lung adenocarcinoma stage IV
     Dosage: 704 MG, OTHER (ONCE IN THREE WEEKS)
     Route: 042
     Dates: start: 20220624, end: 20220810
  2. ALIMTA [Suspect]
     Active Substance: PEMETREXED DISODIUM
     Dosage: 740 MG, OTHER (ONCE IN THREE WEEKS)
     Route: 042
     Dates: start: 20220927, end: 20221201
  3. KEYTRUDA [Suspect]
     Active Substance: PEMBROLIZUMAB
     Indication: Lung adenocarcinoma stage IV
     Dosage: 200 MG, OTHER (ONCE IN THREE WEEKS)
     Route: 042
     Dates: start: 20220624, end: 20220810
  4. KEYTRUDA [Suspect]
     Active Substance: PEMBROLIZUMAB
     Dosage: 200 MG, OTHER (ONCE IN THREE WEEKS)
     Route: 042
     Dates: start: 20220927, end: 20230316
  5. KEYTRUDA [Suspect]
     Active Substance: PEMBROLIZUMAB
     Dosage: 400 MG, OTHER (ONCE IN SIX WEEKS)
     Route: 042
     Dates: start: 20230406, end: 20230519

REACTIONS (3)
  - Tubulointerstitial nephritis [Recovered/Resolved with Sequelae]
  - Sjogren^s syndrome [Recovered/Resolved]
  - Erythema [Recovered/Resolved]

NARRATIVE: CASE EVENT DATE: 20221101
